FAERS Safety Report 25864617 (Version 1)
Quarter: 2025Q3

REPORT INFORMATION
  Report Type: Spontaneous
  Country: EU (occurrence: EU)
  Receive Date: 20250930
  Receipt Date: 20250930
  Transmission Date: 20251020
  Serious: No
  Sender: PFIZER
  Company Number: EU-PFIZER INC-PV202500115277

PATIENT
  Age: 14 Year
  Sex: Male
  Weight: 57 kg

DRUGS (1)
  1. GENOTROPIN [Suspect]
     Active Substance: SOMATROPIN
     Indication: Growth hormone deficiency
     Dosage: 2 MG, DAILY / 6 DAYS / 12 MG PEN
     Route: 058
     Dates: start: 202407

REACTIONS (1)
  - Device leakage [Not Recovered/Not Resolved]
